FAERS Safety Report 24911801 (Version 3)
Quarter: 2025Q4

REPORT INFORMATION
  Report Type: Spontaneous
  Country: US (occurrence: US)
  Receive Date: 20250131
  Receipt Date: 20251202
  Transmission Date: 20260118
  Serious: No
  Sender: PFIZER
  Company Number: US-PFIZER INC-202500020751

PATIENT
  Age: 65 Year
  Sex: Female

DRUGS (1)
  1. XELJANZ [Suspect]
     Active Substance: TOFACITINIB CITRATE
     Dosage: 5 MG

REACTIONS (5)
  - Fibromyalgia [Not Recovered/Not Resolved]
  - Stress [Unknown]
  - Head discomfort [Unknown]
  - Tooth extraction [Unknown]
  - Condition aggravated [Unknown]
